FAERS Safety Report 24065441 (Version 1)
Quarter: 2024Q3

REPORT INFORMATION
  Report Type: Spontaneous
  Country: PT (occurrence: PT)
  Receive Date: 20240709
  Receipt Date: 20240709
  Transmission Date: 20241017
  Serious: Yes (Other)
  Sender: EPIC PHARM
  Company Number: PT-EPICPHARMA-PT-2024EPCLIT00777

PATIENT
  Age: 30 Year
  Sex: Female

DRUGS (2)
  1. SULFADIAZINE [Suspect]
     Active Substance: SULFADIAZINE
     Indication: Cerebral toxoplasmosis
     Route: 065
  2. PYRIMETHAMINE [Concomitant]
     Active Substance: PYRIMETHAMINE
     Indication: Cerebral toxoplasmosis
     Route: 065

REACTIONS (2)
  - Acute kidney injury [Recovering/Resolving]
  - Crystalluria [Recovering/Resolving]
